FAERS Safety Report 25326215 (Version 1)
Quarter: 2025Q2

REPORT INFORMATION
  Report Type: Spontaneous
  Country: EC (occurrence: EC)
  Receive Date: 20250516
  Receipt Date: 20250516
  Transmission Date: 20250717
  Serious: Yes (Other)
  Sender: MERCK SHARP & DOHME LLC
  Company Number: EC-009507513-2284268

PATIENT
  Age: 41 Year

DRUGS (3)
  1. PEMBROLIZUMAB [Suspect]
     Active Substance: PEMBROLIZUMAB
     Route: 065
  2. GEMCITABINE [Suspect]
     Active Substance: GEMCITABINE
  3. CISPLATIN [Suspect]
     Active Substance: CISPLATIN

REACTIONS (2)
  - Ascites [Unknown]
  - Serositis [Unknown]
